FAERS Safety Report 21602550 (Version 1)
Quarter: 2022Q4

REPORT INFORMATION
  Report Type: Spontaneous
  Country: US (occurrence: US)
  Receive Date: 20221116
  Receipt Date: 20221116
  Transmission Date: 20230112
  Serious: Yes (Hospitalization)
  Sender: FDA-Public Use
  Company Number: US-MYLANLABS-2022M1127654

PATIENT
  Age: 56 Year
  Sex: Male
  Weight: 90 kg

DRUGS (13)
  1. EPINEPHRINE [Suspect]
     Active Substance: EPINEPHRINE
     Indication: Life support
     Dosage: 3 MICROGRAM, QMINUTE DOSAGE: EPINEPHRINE 3UG/MIN INFUSION
     Route: 042
  2. EPINEPHRINE [Suspect]
     Active Substance: EPINEPHRINE
     Dosage: 8 MICROGRAM, QMINUTE DOSAGE: EPINEPHRINE 8UG/MIN INFUSION
  3. EPINEPHRINE [Suspect]
     Active Substance: EPINEPHRINE
     Dosage: 4 MICROGRAM, QMINUTE DOSAGE: EPINEPHRINE 4UG/MIN INFUSION
     Route: 042
  4. MILRINONE [Suspect]
     Active Substance: MILRINONE
     Indication: Life support
     Dosage: 50 MICROGRAM/KILOGRAM, DOSAGE: BOLUS DOSE OF MILRINONE AT 50UG/KG
     Route: 065
  5. MILRINONE [Suspect]
     Active Substance: MILRINONE
     Dosage: 0.25 MILLIGRAM/KILOGRAM, QH, DOSAGE: INFUSION OF MILRINONE 0.25UG/KG/HR.
     Route: 065
  6. INSULIN NOS [Concomitant]
     Active Substance: INSULIN NOS
     Indication: Life support
     Dosage: UNK,DOSAGE: 1 U/KG INSULIN BOLUS WITH 25G DEXTROSE WAS ADMINISTERED FOLLOWED BY....
     Route: 065
  7. INSULIN NOS [Concomitant]
     Active Substance: INSULIN NOS
     Dosage: UNK,DOSAGE: 1 U/KG/HR INSULIN INFUSION
     Route: 065
  8. NOREPINEPHRINE [Concomitant]
     Active Substance: NOREPINEPHRINE
     Indication: Life support
     Dosage: 14 MICROGRAM, QMINUTE DOSAGE: INFUSION 14 UG/MIN
     Route: 042
  9. NOREPINEPHRINE [Concomitant]
     Active Substance: NOREPINEPHRINE
     Dosage: 8 MICROGRAM, QMINUTE DOSAGE: INFUSION 8 UG/MIN
     Route: 042
  10. NOREPINEPHRINE [Concomitant]
     Active Substance: NOREPINEPHRINE
     Dosage: 18 MICROGRAM, QMINUTE DOSAGE: INFUSION 18 UG/MIN
     Route: 042
  11. NITRIC OXIDE [Concomitant]
     Active Substance: NITRIC OXIDE
     Indication: Vascular resistance pulmonary
     Dosage: UNK
     Route: 065
  12. VASOPRESSIN [Concomitant]
     Active Substance: VASOPRESSIN
     Indication: Vasodilatation
     Dosage: UNK, DOSAGE: INFUSION 0.04 U
     Route: 065
  13. DEXTROSE [Concomitant]
     Active Substance: DEXTROSE
     Indication: Product used for unknown indication
     Dosage: UNK
     Route: 065

REACTIONS (1)
  - Supraventricular tachycardia [Recovering/Resolving]
